FAERS Safety Report 16937592 (Version 1)
Quarter: 2019Q4

REPORT INFORMATION
  Report Type: Spontaneous
  Country: GB (occurrence: GB)
  Receive Date: 20191018
  Receipt Date: 20191018
  Transmission Date: 20200122
  Serious: Yes (Other)
  Sender: FDA-Public Use
  Company Number: GB-MYLANLABS-2019M1098288

PATIENT
  Age: 16 Year
  Sex: Female
  Weight: 59.41 kg

DRUGS (1)
  1. ISOTRETINOIN. [Suspect]
     Active Substance: ISOTRETINOIN
     Indication: ACNE
     Dosage: UNK
     Route: 048
     Dates: start: 20120515

REACTIONS (4)
  - Sexual dysfunction [Not Recovered/Not Resolved]
  - Vulvovaginal dryness [Unknown]
  - Loss of libido [Not Recovered/Not Resolved]
  - Anorgasmia [Not Recovered/Not Resolved]

NARRATIVE: CASE EVENT DATE: 20130109
